FAERS Safety Report 8795065 (Version 1)
Quarter: 2012Q4

REPORT INFORMATION
  Report Type: Report from Study
  Country: HU (occurrence: HU)
  Receive Date: 20120917
  Receipt Date: 20120917
  Transmission Date: 20130627
  Serious: Yes (Other)
  Sender: FDA-Public Use
  Company Number: HU-ROCHE-1126192

PATIENT
  Sex: Female

DRUGS (5)
  1. XELODA [Suspect]
     Indication: COLORECTAL CANCER
     Route: 065
     Dates: start: 20091207
  2. WHEATGRASS [Concomitant]
  3. ALOE VERA [Concomitant]
  4. GREEN TEA [Concomitant]
  5. COENZYME Q [Concomitant]

REACTIONS (1)
  - Malignant neoplasm progression [Unknown]
